FAERS Safety Report 24961043 (Version 2)
Quarter: 2025Q2

REPORT INFORMATION
  Report Type: Spontaneous
  Country: US (occurrence: US)
  Receive Date: 20250212
  Receipt Date: 20250514
  Transmission Date: 20250717
  Serious: Yes (Other)
  Sender: GILEAD
  Company Number: US-GILEAD-2025-0703243

PATIENT
  Age: 36 Year
  Sex: Male

DRUGS (1)
  1. ATRIPLA [Suspect]
     Active Substance: EFAVIRENZ\EMTRICITABINE\TENOFOVIR DISOPROXIL FUMARATE
     Indication: HIV infection
     Route: 048
     Dates: start: 20120227, end: 20210413

REACTIONS (1)
  - Multiple fractures [Recovered/Resolved]

NARRATIVE: CASE EVENT DATE: 20150225
